FAERS Safety Report 17109023 (Version 1)
Quarter: 2019Q4

REPORT INFORMATION
  Report Type: Spontaneous
  Country: US (occurrence: US)
  Receive Date: 20191203
  Receipt Date: 20191203
  Transmission Date: 20200122
  Serious: Yes (Other)
  Sender: FDA-Public Use
  Company Number: US-BAUSCH-BL-2019-018761

PATIENT
  Sex: Female

DRUGS (1)
  1. RETISERT [Suspect]
     Active Substance: FLUOCINOLONE ACETONIDE
     Indication: PRODUCT USED FOR UNKNOWN INDICATION
     Route: 065
     Dates: start: 20170317

REACTIONS (4)
  - Eye inflammation [Not Recovered/Not Resolved]
  - Vitrectomy [Unknown]
  - Retinal detachment [Unknown]
  - Therapeutic product effect decreased [Unknown]
